FAERS Safety Report 14022661 (Version 3)
Quarter: 2017Q4

REPORT INFORMATION
  Report Type: Spontaneous
  Country: CA (occurrence: CA)
  Receive Date: 20170929
  Receipt Date: 20171214
  Transmission Date: 20180321
  Serious: Yes (Hospitalization)
  Sender: FDA-Public Use
  Company Number: CA-PFIZER INC-2017106052

PATIENT
  Age: 77 Year
  Sex: Female

DRUGS (12)
  1. VITAMIN D /00107901/ [Concomitant]
     Active Substance: ERGOCALCIFEROL
     Dosage: UNK
  2. CLODRONATE DISOD. [Concomitant]
     Dosage: UNK
  3. NITROGLYCERIN. [Concomitant]
     Active Substance: NITROGLYCERIN
     Dosage: UNK
  4. ROSUVASTATIN. [Concomitant]
     Active Substance: ROSUVASTATIN
     Dosage: UNK
  5. GABAPENTIN. [Concomitant]
     Active Substance: GABAPENTIN
     Dosage: UNK
  6. FASLODEX [Concomitant]
     Active Substance: FULVESTRANT
     Dosage: UNK
  7. IBRANCE [Suspect]
     Active Substance: PALBOCICLIB
     Indication: BREAST CANCER METASTATIC
     Dosage: 125 MG, CYCLIC (DAILY FOR 21 DAYS, STOP FOR 7 DAYS, THEN REPEAT CYCLE)
     Route: 048
     Dates: start: 20160616
  8. WARFARIN [Concomitant]
     Active Substance: WARFARIN
     Dosage: UNK
  9. IBRANCE [Suspect]
     Active Substance: PALBOCICLIB
     Dosage: 125 MG, CYCLIC (DAILY, FOR 21 DAYS, STOP FOR 7 DAYS, THEN REPEAT THE CYCLE)
     Route: 048
     Dates: start: 20160708
  10. CITALOPRAM [Concomitant]
     Active Substance: CITALOPRAM HYDROBROMIDE
     Dosage: UNK
  11. ZOPICLONE [Concomitant]
     Active Substance: ZOPICLONE
     Dosage: UNK
  12. SYNTHROID [Concomitant]
     Active Substance: LEVOTHYROXINE SODIUM
     Dosage: UNK

REACTIONS (12)
  - Urinary tract infection [Not Recovered/Not Resolved]
  - Vomiting [Recovering/Resolving]
  - Helicobacter infection [Not Recovered/Not Resolved]
  - Full blood count decreased [Unknown]
  - Cystitis [Unknown]
  - Sepsis [Unknown]
  - Dyspepsia [Recovering/Resolving]
  - Vulvovaginal pain [Not Recovered/Not Resolved]
  - Bone marrow disorder [Unknown]
  - Vulvovaginal burning sensation [Not Recovered/Not Resolved]
  - Burning sensation [Not Recovered/Not Resolved]
  - Pain [Not Recovered/Not Resolved]
